FAERS Safety Report 7825861-5 (Version None)
Quarter: 2011Q4

REPORT INFORMATION
  Report Type: 
  Country: None (occurrence: None)
  Receive Date: 20111019
  Receipt Date: 20111017
  Transmission Date: 20120403
  Serious: Yes (Other)
  Sender: FDA-Public Use
  Company Number: BR-ROCHE-1003733

PATIENT
  Sex: Female
  Weight: 63 kg

DRUGS (14)
  1. ACTEMRA [Suspect]
     Indication: PRODUCT USED FOR UNKNOWN INDICATION
     Route: 042
     Dates: start: 20101101
  2. ACTEMRA [Suspect]
     Route: 042
     Dates: start: 20110801
  3. ACTEMRA [Suspect]
     Route: 042
     Dates: start: 20110601
  4. ACTEMRA [Suspect]
     Route: 042
     Dates: start: 20101201
  5. CORTICORTEN [Concomitant]
  6. METHOTREXATE [Concomitant]
  7. ACTEMRA [Suspect]
     Route: 042
     Dates: start: 20110204
  8. ACTEMRA [Suspect]
     Route: 042
     Dates: start: 20110301
  9. ACTEMRA [Suspect]
     Route: 042
     Dates: start: 20110901
  10. ACTEMRA [Suspect]
     Route: 042
     Dates: start: 20111001
  11. ACTEMRA [Suspect]
     Route: 042
     Dates: start: 20110701
  12. ACTEMRA [Suspect]
     Route: 042
     Dates: start: 20110404
  13. ACTEMRA [Suspect]
     Route: 042
     Dates: start: 20110501
  14. METICORTEN [Concomitant]

REACTIONS (2)
  - BLOOD CHOLESTEROL INCREASED [None]
  - CORONARY ARTERY OCCLUSION [None]
